FAERS Safety Report 9716008 (Version 1)
Quarter: 2013Q4

REPORT INFORMATION
  Report Type: Spontaneous
  Country: US (occurrence: US)
  Receive Date: 20131127
  Receipt Date: 20131127
  Transmission Date: 20140711
  Serious: No
  Sender: FDA-Public Use
  Company Number: US-BAYER-2013-144824

PATIENT
  Age: 82 Year
  Sex: Female
  Weight: 55.78 kg

DRUGS (2)
  1. ALEVE GELCAPS [Suspect]
     Indication: ARTHRITIS
     Dosage: 1 DF, BID
     Route: 048
  2. ALEVE GELCAPS [Suspect]
     Indication: ARTHRITIS
     Dosage: UNK, PRN

REACTIONS (2)
  - Incorrect drug administration duration [None]
  - Expired drug administered [None]
